FAERS Safety Report 20775529 (Version 2)
Quarter: 2022Q3

REPORT INFORMATION
  Report Type: Report from Study
  Country: CA (occurrence: CA)
  Receive Date: 20220502
  Receipt Date: 20220629
  Transmission Date: 20221026
  Serious: Yes (Death, Other)
  Sender: FDA-Public Use
  Company Number: CA-NOVARTISPH-NVSC2021CA177618

PATIENT
  Sex: Female

DRUGS (2)
  1. BEOVU [Suspect]
     Active Substance: BROLUCIZUMAB-DBLL
     Indication: Neovascular age-related macular degeneration
     Dosage: UNK
     Route: 031
  2. BEOVU [Suspect]
     Active Substance: BROLUCIZUMAB-DBLL
     Dosage: UNK
     Route: 031
     Dates: start: 20220322

REACTIONS (3)
  - Death [Fatal]
  - Neovascular age-related macular degeneration [Unknown]
  - Disease progression [Unknown]
